FAERS Safety Report 25065862 (Version 2)
Quarter: 2025Q1

REPORT INFORMATION
  Report Type: Report from Study
  Country: US (occurrence: US)
  Receive Date: 20250311
  Receipt Date: 20250328
  Transmission Date: 20250408
  Serious: Yes (Hospitalization, Other)
  Sender: ABBVIE
  Company Number: US-ABBVIE-6167824

PATIENT
  Age: 60 Year
  Sex: Male
  Weight: 61 kg

DRUGS (1)
  1. RINVOQ [Suspect]
     Active Substance: UPADACITINIB
     Indication: Colitis ulcerative
     Dosage: FORM STRENGTH: 30 MG
     Route: 048
     Dates: start: 2024, end: 20250211

REACTIONS (6)
  - Pulmonary embolism [Recovering/Resolving]
  - Orthostatic hypotension [Recovering/Resolving]
  - Dehydration [Recovering/Resolving]
  - Fall [Recovered/Resolved]
  - Decreased appetite [Recovering/Resolving]
  - Blood test abnormal [Recovering/Resolving]

NARRATIVE: CASE EVENT DATE: 20240101
